FAERS Safety Report 13231554 (Version 1)
Quarter: 2017Q1

REPORT INFORMATION
  Report Type: Spontaneous
  Country: None (occurrence: US)
  Receive Date: 20170214
  Receipt Date: 20170214
  Transmission Date: 20170428
  Serious: No
  Sender: FDA-Public Use
  Company Number: US-AMAG PHARMACEUTICALS, INC.-AMAG201602367

PATIENT

DRUGS (1)
  1. MAKENA [Suspect]
     Active Substance: HYDROXYPROGESTERONE CAPROATE
     Indication: PRODUCT USED FOR UNKNOWN INDICATION
     Dosage: UNK
     Route: 065
     Dates: end: 20161026

REACTIONS (8)
  - Mood swings [Recovered/Resolved]
  - Injection site pruritus [Recovered/Resolved]
  - Panic attack [Unknown]
  - Crying [Unknown]
  - Fatigue [Unknown]
  - Nausea [Unknown]
  - Medication error [Unknown]
  - Hot flush [Unknown]

NARRATIVE: CASE EVENT DATE: 2016
